FAERS Safety Report 16751457 (Version 1)
Quarter: 2019Q3

REPORT INFORMATION
  Report Type: Spontaneous
  Country: BR (occurrence: BR)
  Receive Date: 20190828
  Receipt Date: 20190828
  Transmission Date: 20191005
  Serious: Yes (Hospitalization)
  Sender: FDA-Public Use
  Company Number: BR-PURDUE PHARMA-GBR-2019-0069632

PATIENT
  Age: 37 Year
  Sex: Male

DRUGS (2)
  1. OXYCONTIN [Suspect]
     Active Substance: OXYCODONE HYDROCHLORIDE
     Indication: NECK PAIN
     Dosage: 1 TABLET, Q12H
     Route: 048
     Dates: start: 20190818, end: 20190819
  2. CELECOXIB. [Concomitant]
     Active Substance: CELECOXIB
     Indication: ANTIINFLAMMATORY THERAPY
     Route: 048

REACTIONS (4)
  - Malaise [Recovering/Resolving]
  - Somnolence [Recovering/Resolving]
  - Palpitations [Recovering/Resolving]
  - Blood pressure fluctuation [Recovering/Resolving]

NARRATIVE: CASE EVENT DATE: 20190818
